FAERS Safety Report 9417895 (Version 2)
Quarter: 2013Q4

REPORT INFORMATION
  Report Type: Report from Study
  Country: BE (occurrence: BE)
  Receive Date: 20130724
  Receipt Date: 20131017
  Transmission Date: 20140711
  Serious: Yes (Hospitalization)
  Sender: FDA-Public Use
  Company Number: BE-BAXTER-2013BAX028188

PATIENT
  Age: 63 Year
  Sex: Female

DRUGS (3)
  1. TISSUCOL DUO 500 - COLLE DE FIBRINE CONGEL?E ? DEUX COMPOSANTS [Suspect]
     Indication: INCISIONAL HERNIA REPAIR
     Route: 061
     Dates: start: 20130617, end: 20130617
  2. TISSUCOL DUO 500 - COLLE DE FIBRINE CONGEL?E ? DEUX COMPOSANTS [Suspect]
     Indication: ADHESIOLYSIS
     Route: 061
     Dates: start: 20130617, end: 20130617
  3. ELTHYRONE [Concomitant]
     Indication: HYPOTHYROIDISM
     Dosage: ONE TABLET
     Route: 065

REACTIONS (5)
  - Seroma [Recovered/Resolved]
  - Wound dehiscence [Recovered/Resolved]
  - Malaise [Unknown]
  - Dyspepsia [Unknown]
  - Vomiting [Unknown]
